FAERS Safety Report 5316326-3 (Version None)
Quarter: 2007Q2

REPORT INFORMATION
  Report Type: 
  Country: None (occurrence: None)
  Receive Date: 20070430
  Receipt Date: 20070416
  Transmission Date: 20071010
  Serious: Yes (Hospitalization)
  Sender: FDA-Public Use
  Company Number: 2007BI006457

PATIENT
  Age: 55 Year
  Sex: Female

DRUGS (10)
  1. AVONEX [Suspect]
     Indication: MULTIPLE SCLEROSIS
     Dosage: 30 UG; QW; IM
     Route: 030
     Dates: start: 20051120, end: 20061210
  2. WESTHROID [Concomitant]
  3. ZOLOFT [Concomitant]
  4. NEURONTIN [Concomitant]
  5. FLEXERIL [Concomitant]
  6. FLOMAX [Concomitant]
  7. COMPAZINE [Concomitant]
  8. ZOFRAN [Concomitant]
  9. DOXYCYCLINE [Concomitant]
  10. CYCLOPHOSPHAMIDE [Concomitant]

REACTIONS (6)
  - BREAST CANCER FEMALE [None]
  - HEPATIC STEATOSIS [None]
  - HYPOTHYROIDISM [None]
  - HYSTERECTOMY [None]
  - TEMPOROMANDIBULAR JOINT SURGERY [None]
  - VARICOSE VEIN OPERATION [None]
